FAERS Safety Report 6560502 (Version 1)
Quarter: 2020Q3

REPORT INFORMATION
  Report Type: Report from Study
  Country: HN (occurrence: HN)
  Receive Date: 20080225
  Receipt Date: 20080225
  Transmission Date: 20201104
  Serious: Yes (Hospitalization)
  Sender: FDA-Public Use
  Company Number: HN-ROCHE-547042

PATIENT
  Age: 74 Year
  Sex: Female

DRUGS (1)
  1. IBANDRONIC ACID. [Suspect]
     Active Substance: IBANDRONIC ACID
     Indication: OSTEOPOROSIS
     Route: 048
     Dates: start: 20070601, end: 20071201

REACTIONS (1)
  - Varicose ulceration [Recovering/Resolving]

NARRATIVE: CASE EVENT DATE: 20080101
